FAERS Safety Report 6509837-6 (Version None)
Quarter: 2009Q4

REPORT INFORMATION
  Report Type: 
  Country: None (occurrence: None)
  Receive Date: 20091222
  Receipt Date: 20090126
  Transmission Date: 20100525
  Serious: No
  Sender: FDA-Public Use
  Company Number: US-ABBOTT-09P-163-0499907-00

PATIENT
  Age: 14 Year

DRUGS (1)
  1. OMNICEF [Suspect]
     Indication: DRUG USE FOR UNKNOWN INDICATION
     Dosage: 250 MG/5 ML 1 TABLESPOON 2 IN 1 DAYS FOR 10 DAYS

REACTIONS (1)
  - ACCIDENTAL OVERDOSE [None]
